FAERS Safety Report 15262823 (Version 1)
Quarter: 2018Q3

REPORT INFORMATION
  Report Type: Spontaneous
  Country: US (occurrence: US)
  Receive Date: 20180810
  Receipt Date: 20180810
  Transmission Date: 20181010
  Serious: No
  Sender: FDA-Public Use
  Company Number: US-B.I. PHARMACEUTICALS,INC./RIDGEFIELD-2018-BI-039363

PATIENT
  Age: 71 Year
  Sex: Female

DRUGS (2)
  1. LOSARTAN. [Concomitant]
     Active Substance: LOSARTAN
     Indication: HYPERTENSION
     Route: 065
  2. MOBIC [Suspect]
     Active Substance: MELOXICAM
     Indication: ARTHRITIS
     Dosage: 1 TABLET DAILY;  FORM STRENGTH: 7.5 MG;   ACTION(S) TAKEN WITH PRODUCT: DRUG WITHDRAWN
     Route: 048
     Dates: start: 2006, end: 20171129

REACTIONS (4)
  - Volume blood decreased [Not Recovered/Not Resolved]
  - Constipation [Not Recovered/Not Resolved]
  - Peripheral swelling [Not Recovered/Not Resolved]
  - Nasopharyngitis [Not Recovered/Not Resolved]

NARRATIVE: CASE EVENT DATE: 201712
